FAERS Safety Report 5854826-8 (Version None)
Quarter: 2008Q3

REPORT INFORMATION
  Report Type: 
  Country: None (occurrence: None)
  Receive Date: 20080822
  Receipt Date: 20080206
  Transmission Date: 20090109
  Serious: No
  Sender: FDA-Public Use
  Company Number: US-ABBOTT-08P-163-0437201-00

PATIENT
  Sex: Female
  Weight: 59.928 kg

DRUGS (2)
  1. SYNTHROID [Suspect]
     Indication: AUTOIMMUNE THYROIDITIS
     Route: 048
     Dates: start: 19980101, end: 20020101
  2. SYNTHROID [Suspect]
     Dates: start: 20040101

REACTIONS (2)
  - OSTEOPENIA [None]
  - OSTEOPOROSIS [None]
